FAERS Safety Report 10062857 (Version 1)
Quarter: 2014Q1

REPORT INFORMATION
  Report Type: Spontaneous
  Country: US (occurrence: None)
  Receive Date: 20140328
  Receipt Date: 20140328
  Transmission Date: 20141002
  Serious: No
  Sender: FDA-Public Use
  Company Number: CABO-14004026

PATIENT
  Age: 52 Year
  Sex: Female

DRUGS (7)
  1. COMETRIQ (CABOZANTINIB) CAPSULE [Suspect]
     Indication: LUNG NEOPLASM MALIGNANT
     Route: 048
     Dates: start: 20140213
  2. XANAX (ALPRAZOLAM) [Concomitant]
  3. METOPROLOL (METOPROLOL) [Concomitant]
  4. MIRTAZAPINE (MIRTAZAPINE) [Concomitant]
  5. AMLODIPINE (AMLODIPINE) [Concomitant]
  6. LEVOTHYROXINE (LEVOTHYROXINE) [Concomitant]
  7. VITAMIN D (COLECALCIFEROL) [Concomitant]

REACTIONS (4)
  - Abdominal distension [None]
  - Blood pressure increased [None]
  - Dysphonia [None]
  - Off label use [None]
